FAERS Safety Report 15375909 (Version 1)
Quarter: 2018Q3

REPORT INFORMATION
  Report Type: Spontaneous
  Country: US (occurrence: US)
  Receive Date: 20180912
  Receipt Date: 20180912
  Transmission Date: 20181010
  Serious: No
  Sender: FDA-Public Use
  Company Number: US-SUNOVION-2018SUN003448

PATIENT
  Sex: Female

DRUGS (1)
  1. LATUDA [Suspect]
     Active Substance: LURASIDONE HYDROCHLORIDE
     Dosage: UNK
     Route: 048

REACTIONS (6)
  - Eating disorder [Unknown]
  - Regurgitation [Unknown]
  - Gastrointestinal disorder [Unknown]
  - Dysphagia [Unknown]
  - Drug administration error [Unknown]
  - Foreign body in respiratory tract [Unknown]
